FAERS Safety Report 9618786 (Version 2)
Quarter: 2013Q4

REPORT INFORMATION
  Report Type: Spontaneous
  Country: US (occurrence: US)
  Receive Date: 20131014
  Receipt Date: 20131127
  Transmission Date: 20140711
  Serious: Yes (Other)
  Sender: FDA-Public Use
  Company Number: PHEH2013US021149

PATIENT
  Sex: Female

DRUGS (5)
  1. COMBIPATCH [Suspect]
     Dosage: UNK UKN, UNK
     Route: 062
  2. COMBIPATCH [Suspect]
     Dosage: UNK UKN, UNK
     Route: 062
  3. BABY ASPIRIN [Concomitant]
     Dosage: UNK UKN, UNK
  4. GLUCOSAMINE [Concomitant]
     Dosage: UNK UKN, UNK
  5. VITAMIN B COMPLEX [Concomitant]
     Dosage: UNK UKN, UNK

REACTIONS (2)
  - Menopausal symptoms [Unknown]
  - Drug ineffective [Unknown]
